FAERS Safety Report 5927857-7 (Version None)
Quarter: 2008Q4

REPORT INFORMATION
  Report Type: 
  Country: None (occurrence: None)
  Receive Date: 20081021
  Receipt Date: 20081014
  Transmission Date: 20090506
  Serious: Yes (Death)
  Sender: FDA-Public Use
  Company Number: 2008AL011228

PATIENT
  Sex: Male

DRUGS (1)
  1. DIGOXIN [Suspect]
     Dosage: PO
     Route: 048

REACTIONS (19)
  - ANHEDONIA [None]
  - ANXIETY [None]
  - ARRHYTHMIA [None]
  - ASTHENIA [None]
  - CARDIAC DEATH [None]
  - DEFORMITY [None]
  - DIZZINESS [None]
  - DYSPEPSIA [None]
  - ECONOMIC PROBLEM [None]
  - IRRITABILITY [None]
  - MULTIPLE INJURIES [None]
  - NAUSEA [None]
  - PAIN [None]
  - QUALITY OF LIFE DECREASED [None]
  - SOCIAL PROBLEM [None]
  - SUDDEN DEATH [None]
  - THERAPEUTIC AGENT TOXICITY [None]
  - UNEVALUABLE EVENT [None]
  - WEIGHT DECREASED [None]
